FAERS Safety Report 8090852-9 (Version None)
Quarter: 2012Q1

REPORT INFORMATION
  Report Type: 
  Country: None (occurrence: None)
  Receive Date: 20120131
  Receipt Date: 20120120
  Transmission Date: 20120608
  Serious: Yes (Other)
  Sender: FDA-Public Use
  Company Number: PT-JNJFOC-20120111820

PATIENT
  Sex: Female

DRUGS (5)
  1. REMICADE [Suspect]
     Route: 042
     Dates: start: 20100101
  2. REMICADE [Suspect]
     Indication: COLITIS ULCERATIVE
     Route: 042
     Dates: start: 20110601
  3. REMICADE [Suspect]
     Route: 042
     Dates: start: 20110401
  4. AZATHIOPRINE [Concomitant]
     Route: 065
     Dates: start: 20110401
  5. REMICADE [Suspect]
     Route: 042
     Dates: start: 20110801

REACTIONS (1)
  - BLASTOMYCOSIS [None]
